FAERS Safety Report 9819530 (Version 1)
Quarter: 2014Q1

REPORT INFORMATION
  Report Type: Spontaneous
  Country: AU (occurrence: AU)
  Receive Date: 20140115
  Receipt Date: 20140115
  Transmission Date: 20141002
  Serious: Yes (Other)
  Sender: FDA-Public Use
  Company Number: PHHY2014AU002293

PATIENT
  Age: 14 Year
  Sex: Male

DRUGS (4)
  1. PREDNISOLONE [Suspect]
     Indication: BRONCHOPULMONARY ASPERGILLOSIS ALLERGIC
     Dosage: 1 MG/KG, PER DAY
     Route: 048
  2. PREDNISONE [Suspect]
     Indication: BRONCHOPULMONARY ASPERGILLOSIS ALLERGIC
     Dosage: 0.5 MG/KG, PER DAY
  3. METHYLPREDNISOLONE [Suspect]
     Indication: BRONCHOPULMONARY ASPERGILLOSIS ALLERGIC
     Dosage: 15 MG/KG, PER DAY
     Route: 042
  4. ITRACONAZOLE [Concomitant]
     Indication: BRONCHOPULMONARY ASPERGILLOSIS ALLERGIC
     Dosage: 200 MG, PER DAY

REACTIONS (5)
  - Bone density decreased [Unknown]
  - Adrenal insufficiency [Unknown]
  - Growth retardation [Unknown]
  - Drug dependence [Unknown]
  - Weight increased [Unknown]
